FAERS Safety Report 8136965-4 (Version None)
Quarter: 2012Q1

REPORT INFORMATION
  Report Type: 
  Country: None (occurrence: None)
  Receive Date: 20120214
  Receipt Date: 20120208
  Transmission Date: 20120608
  Serious: Yes (Other)
  Sender: FDA-Public Use
  Company Number: US-ASTRAZENECA-2012SE08481

PATIENT
  Age: 75 Year
  Sex: Female

DRUGS (1)
  1. FASLODEX [Suspect]

REACTIONS (1)
  - CEREBROVASCULAR ACCIDENT [None]
